FAERS Safety Report 6204708-7 (Version None)
Quarter: 2009Q2

REPORT INFORMATION
  Report Type: 
  Country: None (occurrence: None)
  Receive Date: 20090527
  Receipt Date: 20090519
  Transmission Date: 20091009
  Serious: Yes (Hospitalization)
  Sender: FDA-Public Use
  Company Number: PHHY2009CO19624

PATIENT
  Sex: Female

DRUGS (1)
  1. ACLASTA [Suspect]
     Indication: OSTEOPOROSIS
     Dosage: 1 VIAL PER YEAR
     Route: 042
     Dates: start: 20090514

REACTIONS (5)
  - EAR PAIN [None]
  - HEADACHE [None]
  - NECK PAIN [None]
  - PYREXIA [None]
  - VOMITING [None]
